FAERS Safety Report 7382855-4 (Version None)
Quarter: 2011Q1

REPORT INFORMATION
  Report Type: 
  Country: None (occurrence: None)
  Receive Date: 20110323
  Receipt Date: 20110323
  Transmission Date: 20110831
  Serious: Yes (Other)
  Sender: FDA-Public Use
  Company Number: None

PATIENT
  Age: 55 Year
  Sex: Female
  Weight: 63.5036 kg

DRUGS (1)
  1. ULTILET STERILE ALCOHOL SWABS BOCA MEDICAL PRODUCTS [Suspect]
     Dosage: USED ONCE
     Dates: start: 20110212, end: 20110212

REACTIONS (2)
  - SKIN DISORDER [None]
  - APPLICATION SITE RASH [None]
